FAERS Safety Report 7854947-4 (Version None)
Quarter: 2011Q4

REPORT INFORMATION
  Report Type: 
  Country: None (occurrence: None)
  Receive Date: 20111026
  Receipt Date: 20100716
  Transmission Date: 20120403
  Serious: No
  Sender: FDA-Public Use
  Company Number: US-BAYER-201028355NA

PATIENT
  Age: 67 Year
  Sex: Male

DRUGS (1)
  1. LEVITRA [Suspect]
     Indication: ERECTILE DYSFUNCTION
     Dosage: 20 MG, ONCE
     Route: 048
     Dates: start: 20100709

REACTIONS (1)
  - ERECTILE DYSFUNCTION [None]
